FAERS Safety Report 7891858-2 (Version None)
Quarter: 2011Q4

REPORT INFORMATION
  Report Type: 
  Country: None (occurrence: None)
  Receive Date: 20111103
  Receipt Date: 20110810
  Transmission Date: 20120403
  Serious: No
  Sender: FDA-Public Use
  Company Number: US-AMGEN-USASP2011040820

PATIENT
  Sex: Male
  Weight: 74.83 kg

DRUGS (8)
  1. GARLIC                             /01570501/ [Concomitant]
     Dosage: 300 MG, UNK
  2. ENBREL [Suspect]
     Indication: PRODUCT USED FOR UNKNOWN INDICATION
     Dosage: 50 MG, QWK
     Route: 058
  3. AMITRIPTYLINE HCL [Concomitant]
     Dosage: 25 MG, UNK
  4. VITAMIN C                          /00008001/ [Concomitant]
     Dosage: 1000 MG, UNK
  5. VITAMIN D [Concomitant]
     Dosage: 1000 IU, UNK
  6. FISH OIL [Concomitant]
     Dosage: UNK
  7. LIPITOR [Concomitant]
     Dosage: 80 MG, UNK
  8. MULTIVITAMIN                       /00097801/ [Concomitant]
     Dosage: UNK

REACTIONS (1)
  - INJECTION SITE PRURITUS [None]
